FAERS Safety Report 7597449-5 (Version None)
Quarter: 2011Q3

REPORT INFORMATION
  Report Type: 
  Country: None (occurrence: None)
  Receive Date: 20110708
  Receipt Date: 20110627
  Transmission Date: 20111222
  Serious: Yes (Hospitalization)
  Sender: FDA-Public Use
  Company Number: PHFR2011IE00619

PATIENT
  Sex: Male

DRUGS (6)
  1. OMEPRAZOLE [Concomitant]
     Dosage: 20 MG, QD
     Route: 048
  2. ATORVASTATIN [Concomitant]
     Dosage: 40 MG, QD
     Route: 048
  3. KWELLS [Concomitant]
     Dosage: 1 TABLET, QD
     Route: 048
  4. PROPRANOLOL [Concomitant]
     Dosage: 10 MG, QD
     Route: 048
  5. CLOZAPINE [Suspect]
     Dosage: 100 MG, BID
     Route: 048
     Dates: start: 20070718
  6. FLUOXETINE [Concomitant]
     Dosage: 20 MG, QD
     Route: 048

REACTIONS (1)
  - DIFFERENTIAL WHITE BLOOD CELL COUNT ABNORMAL [None]
